FAERS Safety Report 9892830 (Version 5)
Quarter: 2017Q1

REPORT INFORMATION
  Report Type: Report from Study
  Country: CZ (occurrence: CZ)
  Receive Date: 20140213
  Receipt Date: 20170227
  Transmission Date: 20170429
  Serious: Yes (Disabling)
  Sender: FDA-Public Use
  Company Number: CZ-AMGEN-CZECT2014009446

PATIENT
  Age: 41 Year
  Sex: Female
  Weight: 50 kg

DRUGS (9)
  1. DENOSUMAB [Suspect]
     Active Substance: DENOSUMAB
     Indication: BREAST CANCER
     Dosage: 120 MG, UNK
     Route: 058
     Dates: start: 20110228, end: 20110707
  2. LOKREN [Concomitant]
     Active Substance: BETAXOLOL HYDROCHLORIDE
     Dosage: 10 MG, UNK
     Route: 048
     Dates: start: 2009, end: 20120513
  3. SUPRACAIN [Concomitant]
     Dosage: 1 UNK, UNK
     Route: 058
     Dates: start: 20111103, end: 20111103
  4. LIPANTHYL [Concomitant]
     Active Substance: FENOFIBRATE
     Dosage: 1 UNK, UNK
     Route: 048
     Dates: start: 2009
  5. TRITTICO AC [Concomitant]
     Active Substance: TRAZODONE HYDROCHLORIDE
     Dosage: 50 MG, UNK
     Route: 048
     Dates: start: 20110930
  6. ADRIAMYCIN [Concomitant]
     Active Substance: DOXORUBICIN HYDROCHLORIDE
     Indication: BREAST CANCER
     Dosage: UNK
     Dates: start: 20110201, end: 20110517
  7. CALCICHEW D3 [Concomitant]
     Active Substance: CALCIUM\CHOLECALCIFEROL
     Dosage: 1 UNK, UNK
     Route: 048
     Dates: start: 20110228
  8. ZOLADEX [Concomitant]
     Active Substance: GOSERELIN ACETATE
     Indication: BREAST CANCER
     Dosage: UNK
     Dates: start: 20110201, end: 20130131
  9. DALACIN [Concomitant]
     Active Substance: CLINDAMYCIN
     Dosage: 300 MG, Q6H
     Route: 048
     Dates: start: 20111103, end: 20111110

REACTIONS (1)
  - Periostitis [Recovered/Resolved]

NARRATIVE: CASE EVENT DATE: 20120125
